FAERS Safety Report 5894394-8 (Version None)
Quarter: 2008Q3

REPORT INFORMATION
  Report Type: 
  Country: None (occurrence: None)
  Receive Date: 20080922
  Receipt Date: 20080909
  Transmission Date: 20090109
  Serious: Yes (Hospitalization)
  Sender: FDA-Public Use
  Company Number: 2008BI021387

PATIENT
  Age: 57 Year
  Sex: Female

DRUGS (1)
  1. AVONEX [Suspect]
     Indication: MULTIPLE SCLEROSIS
     Dosage: ;IM
     Route: 030
     Dates: start: 20010103

REACTIONS (4)
  - INTRACRANIAL ANEURYSM [None]
  - LUNG INFECTION [None]
  - RENAL CANCER [None]
  - ROAD TRAFFIC ACCIDENT [None]
